FAERS Safety Report 6284408-8 (Version None)
Quarter: 2009Q3

REPORT INFORMATION
  Report Type: 
  Country: None (occurrence: None)
  Receive Date: 20090720
  Receipt Date: 20090130
  Transmission Date: 20100115
  Serious: Yes (Other)
  Sender: FDA-Public Use
  Company Number: THYM-1001089

PATIENT
  Age: 39 Year
  Sex: Male

DRUGS (6)
  1. THYMOGLOBULIN [Suspect]
     Indication: APLASTIC ANAEMIA
     Dosage: INTRAVENOUS
     Route: 042
  2. CAMPATH [Suspect]
     Indication: BONE MARROW CONDITIONING REGIMEN
  3. LYMHPOGLOBULIN (ANTI-LYMPHOCYTE GLOBULIN (HORSE)) SOLUTION FOR INFUSIO [Suspect]
     Indication: APLASTIC ANAEMIA
     Dosage: INTRAVENOUS
     Route: 042
  4. CYCLOSPORINE [Suspect]
     Indication: PROPHYLAXIS AGAINST GRAFT VERSUS HOST DISEASE
  5. CYCLOPHOSPHAMIDE [Concomitant]
  6. FLUDARABINE PHOSPHATE [Concomitant]

REACTIONS (3)
  - EPSTEIN-BARR VIRUS ASSOCIATED LYMPHOPROLIFERATIVE DISORDER [None]
  - EPSTEIN-BARR VIRUS INFECTION [None]
  - THYROIDITIS [None]
